FAERS Safety Report 7632435-8 (Version None)
Quarter: 2011Q3

REPORT INFORMATION
  Report Type: 
  Country: None (occurrence: None)
  Receive Date: 20110725
  Receipt Date: 20100908
  Transmission Date: 20111222
  Serious: No
  Sender: FDA-Public Use
  Company Number: US-BRISTOL-MYERS SQUIBB COMPANY-15275910

PATIENT
  Age: 85 Year
  Sex: Male
  Weight: 99 kg

DRUGS (6)
  1. ASPIRIN [Concomitant]
  2. CRANBERRY JUICE [Suspect]
  3. TRIAMTERENE [Concomitant]
  4. COZAAR [Concomitant]
  5. COUMADIN [Suspect]
     Indication: ATRIAL FIBRILLATION
     Dosage: 7.5MG WITH OCCASIONALLY 1/2PILL SEVERAL/DAY/WK
  6. LOPRESSOR [Concomitant]

REACTIONS (1)
  - INTERNATIONAL NORMALISED RATIO INCREASED [None]
